FAERS Safety Report 9969886 (Version 1)
Quarter: 2014Q1

REPORT INFORMATION
  Report Type: Spontaneous
  Country: US (occurrence: US)
  Receive Date: 20140306
  Receipt Date: 20140306
  Transmission Date: 20141002
  Serious: Yes (Other)
  Sender: FDA-Public Use
  Company Number: US-JNJFOC-20140218255

PATIENT
  Age: 57 Year
  Sex: Male
  Weight: 68.04 kg

DRUGS (5)
  1. XARELTO [Suspect]
     Indication: DEEP VEIN THROMBOSIS
     Route: 048
     Dates: start: 20140220, end: 20140226
  2. LISINOPRIL [Concomitant]
     Route: 065
  3. PROTONIX [Concomitant]
     Route: 065
  4. VIAGRA [Concomitant]
     Route: 065
  5. PROGRAF [Concomitant]
     Route: 065
     Dates: start: 1991

REACTIONS (2)
  - Hepatitis [Unknown]
  - Hepatic function abnormal [Unknown]
